FAERS Safety Report 25525972 (Version 2)
Quarter: 2025Q3

REPORT INFORMATION
  Report Type: Report from Study
  Country: KW (occurrence: KW)
  Receive Date: 20250707
  Receipt Date: 20250716
  Transmission Date: 20251020
  Serious: Yes (Other)
  Sender: SANDOZ
  Company Number: KW-SANDOZ-SDZ2025KW046731

PATIENT
  Age: 42 Year
  Sex: Female

DRUGS (1)
  1. HYRIMOZ [Suspect]
     Active Substance: ADALIMUMAB-ADAZ
     Indication: Rheumatoid arthritis
     Dosage: 40 MG, Q2W
     Route: 058
     Dates: start: 2024

REACTIONS (2)
  - Coronary artery disease [Recovering/Resolving]
  - Angioplasty [Recovering/Resolving]

NARRATIVE: CASE EVENT DATE: 20250619
